FAERS Safety Report 22266567 (Version 2)
Quarter: 2023Q4

REPORT INFORMATION
  Report Type: Report from Study
  Country: US (occurrence: US)
  Receive Date: 20230428
  Receipt Date: 20231012
  Transmission Date: 20240110
  Serious: Yes (Death)
  Sender: FDA-Public Use
  Company Number: US-TAIHOP-2023-003276

PATIENT
  Age: 64 Year
  Sex: Male
  Weight: 49.9 kg

DRUGS (1)
  1. LONSURF [Suspect]
     Active Substance: TIPIRACIL HYDROCHLORIDE\TRIFLURIDINE
     Indication: Product used for unknown indication
     Dosage: CYCLE 1
     Route: 048
     Dates: start: 20230401

REACTIONS (1)
  - Death [Fatal]

NARRATIVE: CASE EVENT DATE: 20230410
